FAERS Safety Report 5083848-2 (Version None)
Quarter: 2006Q3

REPORT INFORMATION
  Report Type: 
  Country: None (occurrence: None)
  Receive Date: 20060818
  Receipt Date: 20060805
  Transmission Date: 20061208
  Serious: Yes (Other)
  Sender: FDA-Public Use
  Company Number: US-AMGEN-US190335

PATIENT
  Sex: Female
  Weight: 64.9 kg

DRUGS (6)
  1. PROCRIT [Suspect]
     Indication: ANAEMIA OF MALIGNANT DISEASE
     Route: 065
  2. PLAVIX [Concomitant]
     Route: 065
  3. COREG [Concomitant]
     Route: 065
  4. PROTONIX [Concomitant]
     Route: 065
  5. ZELNORM [Concomitant]
     Route: 065
  6. LIPITOR [Concomitant]
     Route: 065

REACTIONS (2)
  - CARDIAC DISORDER [None]
  - MYELODYSPLASTIC SYNDROME [None]
